FAERS Safety Report 13406310 (Version 1)
Quarter: 2017Q2

REPORT INFORMATION
  Report Type: Spontaneous
  Country: FR (occurrence: FR)
  Receive Date: 20170405
  Receipt Date: 20170405
  Transmission Date: 20170830
  Serious: Yes (Hospitalization)
  Sender: FDA-Public Use
  Company Number: FR-009507513-1703FRA012581

PATIENT
  Age: 35 Year
  Sex: Female

DRUGS (7)
  1. GONAL-F [Suspect]
     Active Substance: FOLLITROPIN
     Dosage: 87.5 IU FOR 2 DAYS
     Route: 058
     Dates: start: 20160519, end: 20160520
  2. ORGALUTRAN [Suspect]
     Active Substance: GANIRELIX ACETATE
     Indication: IN VITRO FERTILISATION
     Dosage: 1 DF, ONCE
     Route: 058
     Dates: start: 20160517, end: 20160520
  3. GONADOTROPHINE CHORIONIQUE ENDO 1500 UI/1ML [Suspect]
     Active Substance: GONADOTROPHIN, CHORIONIC
     Indication: IN VITRO FERTILISATION
     Dosage: 1 DF, ONCE
     Route: 030
     Dates: start: 20160521
  4. GONAL-F [Suspect]
     Active Substance: FOLLITROPIN
     Dosage: 112.5 IU FOR 5 DAYS
     Route: 058
     Dates: start: 20160512, end: 20160516
  5. GONAL-F [Suspect]
     Active Substance: FOLLITROPIN
     Dosage: 75 IU FOR 2 DAYS
     Route: 058
     Dates: start: 20160517, end: 20160518
  6. DECAPEPTYL (ACETATE) [Suspect]
     Active Substance: TRIPTORELIN ACETATE
     Indication: IN VITRO FERTILISATION
     Dosage: 2 DF, ONCE
     Route: 058
     Dates: start: 20160521
  7. PROGESTAN [Suspect]
     Active Substance: PROGESTERONE
     Dosage: 4 DF, QD
     Route: 067
     Dates: start: 20160522

REACTIONS (4)
  - Hyponatraemia [Recovered/Resolved]
  - Ascites [Recovered/Resolved]
  - Subileus [Recovered/Resolved]
  - Ovarian hyperstimulation syndrome [Recovered/Resolved]

NARRATIVE: CASE EVENT DATE: 20160617
